FAERS Safety Report 8820963 (Version 2)
Quarter: 2015Q2

REPORT INFORMATION
  Report Type: Report from Study
  Country: US (occurrence: US)
  Receive Date: 20121002
  Receipt Date: 20150630
  Transmission Date: 20150821
  Serious: Yes (Death)
  Sender: FDA-Public Use
  Company Number: US-ROCHE-1134049

PATIENT
  Sex: Male

DRUGS (15)
  1. TYLENOL [Concomitant]
     Active Substance: ACETAMINOPHEN
     Route: 048
  2. NEURONTIN [Concomitant]
     Active Substance: GABAPENTIN
  3. RITUXAN [Suspect]
     Active Substance: RITUXIMAB
     Route: 042
  4. PREDNISONE. [Concomitant]
     Active Substance: PREDNISONE
     Route: 048
  5. BENADRYL [Concomitant]
     Active Substance: DIPHENHYDRAMINE HYDROCHLORIDE
     Route: 042
  6. DECADRON [Concomitant]
     Active Substance: DEXAMETHASONE
     Route: 042
  7. COMPAZINE [Concomitant]
     Active Substance: PROCHLORPERAZINE MALEATE
     Route: 042
  8. SENOKOT [Concomitant]
     Active Substance: SENNOSIDES
     Dosage: EVERY NIGHT AT BED TIME
     Route: 048
  9. VANCOMYCIN [Concomitant]
     Active Substance: VANCOMYCIN
     Route: 065
  10. VANCOMYCIN [Concomitant]
     Active Substance: VANCOMYCIN
     Route: 065
  11. RITUXAN [Suspect]
     Active Substance: RITUXIMAB
     Indication: CHRONIC LYMPHOCYTIC LEUKAEMIA
     Route: 042
     Dates: start: 20070910
  12. FLUDARABINE [Concomitant]
     Active Substance: FLUDARABINE PHOSPHATE
     Route: 042
  13. AMBIEN [Concomitant]
     Active Substance: ZOLPIDEM TARTRATE
     Dosage: AS DIRECTED
     Route: 048
  14. ZOFRAN [Concomitant]
     Active Substance: ONDANSETRON HYDROCHLORIDE
     Route: 065
  15. DECADRON [Concomitant]
     Active Substance: DEXAMETHASONE

REACTIONS (13)
  - Blood pressure decreased [Unknown]
  - Neuralgia [Unknown]
  - Nausea [Unknown]
  - Fatigue [Unknown]
  - Death [Fatal]
  - Hyperhidrosis [Unknown]
  - Rash [Unknown]
  - Off label use [Unknown]
  - Pruritus [Recovering/Resolving]
  - Vomiting [Unknown]
  - Dyspnoea [Unknown]
  - White blood cell count increased [Unknown]
  - Herpes zoster [Recovering/Resolving]
